FAERS Safety Report 21846411 (Version 5)
Quarter: 2023Q4

REPORT INFORMATION
  Report Type: Report from Study
  Country: US (occurrence: US)
  Receive Date: 20230111
  Receipt Date: 20231214
  Transmission Date: 20240109
  Serious: Yes (Death, Hospitalization)
  Sender: FDA-Public Use
  Company Number: US-BAUSCH-BL-2023-000395

PATIENT
  Age: 69 Year
  Sex: Female

DRUGS (1)
  1. XIFAXAN [Suspect]
     Active Substance: RIFAXIMIN
     Indication: Hepatic encephalopathy
     Route: 048
     Dates: start: 20201224

REACTIONS (9)
  - Renal failure [Fatal]
  - Ill-defined disorder [Fatal]
  - Ammonia increased [Not Recovered/Not Resolved]
  - Pulmonary oedema [Unknown]
  - Cardiac disorder [Unknown]
  - Fall [Not Recovered/Not Resolved]
  - Urinary tract infection [Unknown]
  - Hypertension [Unknown]
  - Dehydration [Unknown]

NARRATIVE: CASE EVENT DATE: 20230109
